FAERS Safety Report 14310070 (Version 7)
Quarter: 2024Q4

REPORT INFORMATION
  Report Type: Spontaneous
  Country: AT (occurrence: AT)
  Receive Date: 20171220
  Receipt Date: 20241016
  Transmission Date: 20250114
  Serious: Yes (Life-Threatening, Hospitalization, Other)
  Sender: MYLAN
  Company Number: AT-PFIZER INC-2017516936

PATIENT
  Age: 5 Year
  Sex: Male

DRUGS (33)
  1. POSACONAZOLE [Suspect]
     Active Substance: POSACONAZOLE
     Indication: Antifungal treatment
     Dosage: 15 MILLIGRAM/KILOGRAM, QD
     Route: 065
     Dates: start: 201504, end: 201505
  2. POSACONAZOLE [Suspect]
     Active Substance: POSACONAZOLE
     Dosage: 20 MG/KG, DAILY (INCREASED DOSAGE OF 20 MG/KG/DAY)
     Route: 065
     Dates: start: 201604, end: 201605
  3. VORICONAZOLE [Suspect]
     Active Substance: VORICONAZOLE
     Indication: Mucormycosis
     Dosage: 8 MILLIGRAM/KILOGRAM, QD
     Route: 065
     Dates: start: 201503, end: 201504
  4. VORICONAZOLE [Suspect]
     Active Substance: VORICONAZOLE
     Indication: Antifungal treatment
     Dosage: 8 MILLIGRAM/KILOGRAM, QD
     Route: 065
     Dates: start: 20150317, end: 20150402
  5. VORICONAZOLE [Suspect]
     Active Substance: VORICONAZOLE
     Indication: Aspergillus infection
  6. CASPOFUNGIN [Suspect]
     Active Substance: CASPOFUNGIN
     Indication: Antifungal treatment
     Dosage: 1 MILLIGRAM/KILOGRAM, QD
     Route: 065
     Dates: start: 201502, end: 201503
  7. CASPOFUNGIN [Suspect]
     Active Substance: CASPOFUNGIN
     Dosage: UNK
     Route: 065
  8. CASPOFUNGIN [Suspect]
     Active Substance: CASPOFUNGIN
     Dosage: UNK
     Route: 065
     Dates: start: 20150220, end: 20150312
  9. METHOTREXATE [Suspect]
     Active Substance: METHOTREXATE
     Indication: B precursor type acute leukaemia
     Dosage: UNK, BLOCK IA
     Route: 037
     Dates: start: 201408, end: 201502
  10. METHOTREXATE [Suspect]
     Active Substance: METHOTREXATE
     Dosage: UNK, BLOCK IB
     Route: 037
  11. METHOTREXATE [Suspect]
     Active Substance: METHOTREXATE
     Dosage: 0.5-0.7 MG/KG ONCE WEEKLY
     Route: 037
     Dates: start: 201504, end: 201505
  12. METHOTREXATE [Suspect]
     Active Substance: METHOTREXATE
     Dosage: UNK, BLOCK II A
     Route: 037
     Dates: end: 201502
  13. DOXORUBICIN [Suspect]
     Active Substance: DOXORUBICIN
     Indication: B precursor type acute leukaemia
     Dosage: UNK, BLOCK IIA
     Route: 065
     Dates: start: 201501, end: 201501
  14. ONCASPAR [Suspect]
     Active Substance: PEGASPARGASE
     Indication: B precursor type acute leukaemia
     Dosage: 2500 U/M2, DAY 12 AND DAY 26 OF BLOCK IA
     Route: 042
     Dates: start: 201408, end: 201408
  15. ONCASPAR [Suspect]
     Active Substance: PEGASPARGASE
     Dosage: 2500 U/M2, DAY 12 AND DA8 OF BLOCK IIA
     Route: 042
     Dates: start: 201501, end: 201501
  16. CYCLOPHOSPHAMIDE [Suspect]
     Active Substance: CYCLOPHOSPHAMIDE
     Indication: Acute lymphocytic leukaemia
     Dosage: UNK, BLOCK IB
     Route: 065
  17. THIOGUANINE [Suspect]
     Active Substance: THIOGUANINE
     Indication: B precursor type acute leukaemia
     Dosage: UNK
     Route: 065
  18. MERCAPTOPURINE [Suspect]
     Active Substance: MERCAPTOPURINE
     Indication: Acute lymphocytic leukaemia
     Dosage: UNK, BLOCK IB
     Route: 065
     Dates: start: 2014, end: 2014
  19. MERCAPTOPURINE [Suspect]
     Active Substance: MERCAPTOPURINE
     Indication: B precursor type acute leukaemia
     Dosage: 1.5 MILLIGRAM/KILOGRAM, QD
     Route: 065
  20. PREDNISONE [Suspect]
     Active Substance: PREDNISONE
     Indication: Acute lymphocytic leukaemia
     Dosage: UNK, BLOCK IA
     Route: 065
     Dates: start: 201408, end: 2014
  21. PREDNISONE [Suspect]
     Active Substance: PREDNISONE
     Dosage: UNK
     Route: 065
     Dates: start: 201501, end: 2015
  22. DEXAMETHASONE [Suspect]
     Active Substance: DEXAMETHASONE
     Indication: Acute lymphocytic leukaemia
     Dosage: UNK UNK, QD
     Route: 065
     Dates: start: 201501, end: 201502
  23. DEXAMETHASONE [Suspect]
     Active Substance: DEXAMETHASONE
     Indication: B precursor type acute leukaemia
     Dosage: 10 MILLIGRAM/SQ. METER, QD
     Route: 065
     Dates: start: 201501, end: 201502
  24. VINCRISTINE [Suspect]
     Active Substance: VINCRISTINE
     Indication: Acute lymphocytic leukaemia
     Dosage: UNK, BLOCK IA
     Route: 065
     Dates: start: 201408
  25. VINCRISTINE [Suspect]
     Active Substance: VINCRISTINE
     Indication: B precursor type acute leukaemia
     Dosage: UNK, BLOCK IIA
     Route: 065
     Dates: start: 201501, end: 2015
  26. DAUNORUBICIN HYDROCHLORIDE [Suspect]
     Active Substance: DAUNORUBICIN HYDROCHLORIDE
     Indication: Acute lymphocytic leukaemia
     Dosage: 4 DOSES, BLOCK IA
     Route: 065
     Dates: start: 201408, end: 2014
  27. CYTARABINE [Suspect]
     Active Substance: CYTARABINE
     Indication: Acute lymphocytic leukaemia
     Dosage: UNK, BLOCK IB
     Route: 065
  28. AMBISOME [Suspect]
     Active Substance: AMPHOTERICIN B
     Indication: Gastric infection
     Dosage: UNK
     Route: 065
     Dates: start: 201408, end: 201612
  29. AMBISOME [Suspect]
     Active Substance: AMPHOTERICIN B
     Indication: Pulmonary mucormycosis
     Dosage: 10 MILLIGRAM/KILOGRAM, QD
     Route: 065
  30. AMBISOME [Suspect]
     Active Substance: AMPHOTERICIN B
     Dosage: 1 MILLIGRAM/KILOGRAM, QD
     Route: 065
  31. LINEZOLID [Concomitant]
     Active Substance: LINEZOLID
     Indication: Lung infiltration
     Dosage: UNK
     Route: 065
  32. CEFTAZIDIME [Concomitant]
     Active Substance: CEFTAZIDIME
     Indication: Lung infiltration
     Dosage: UNK
     Route: 065
  33. METHOTREXATE [Concomitant]
     Active Substance: METHOTREXATE
     Dosage: 0.5-0.7 MG/KG ONCE WEEKLY
     Route: 065
     Dates: start: 201504, end: 201505

REACTIONS (8)
  - Drug ineffective [Unknown]
  - No adverse event [Unknown]
  - Pulmonary mucormycosis [Recovering/Resolving]
  - Aspergillus infection [Recovering/Resolving]
  - Hypokalaemia [Unknown]
  - Mucormycosis [Recovered/Resolved]
  - Off label use [Recovered/Resolved]
  - Treatment noncompliance [Unknown]

NARRATIVE: CASE EVENT DATE: 20150201
